FAERS Safety Report 15747034 (Version 2)
Quarter: 2018Q4

REPORT INFORMATION
  Report Type: Report from Study
  Country: BR (occurrence: BR)
  Receive Date: 20181220
  Receipt Date: 20181224
  Transmission Date: 20190205
  Serious: Yes (Other)
  Sender: FDA-Public Use
  Company Number: PHHY2018BR157964

PATIENT
  Age: 17 Year
  Sex: Female
  Weight: 46 kg

DRUGS (8)
  1. XOLAIR [Suspect]
     Active Substance: OMALIZUMAB
     Dosage: 450 MG, EVERY 15 DAYS
     Route: 058
     Dates: start: 20181123
  2. ALENIA [Concomitant]
     Active Substance: BUDESONIDE\FORMOTEROL FUMARATE
     Indication: ASTHMA
     Dosage: UNK
     Route: 048
     Dates: start: 2016
  3. BUSONID [Concomitant]
     Active Substance: BUDESONIDE
     Indication: ASTHMA
     Dosage: UNK
     Route: 045
     Dates: start: 2016
  4. PIEMONTE [Concomitant]
     Active Substance: MONTELUKAST SODIUM
     Indication: ASTHMA
     Dosage: 1 DF, QD
     Route: 048
     Dates: start: 2016
  5. AEROLIN [Concomitant]
     Active Substance: ALBUTEROL
     Indication: ASTHMA
     Dosage: UNK
     Route: 065
     Dates: start: 2016
  6. XOLAIR [Suspect]
     Active Substance: OMALIZUMAB
     Dosage: 450 MG, BIW
     Route: 058
  7. XOLAIR [Suspect]
     Active Substance: OMALIZUMAB
     Indication: ASTHMA
     Dosage: 450 MG (3 AMPOULES OF 150 MG), EVERY 2 WEEKS
     Route: 058
     Dates: start: 20181109
  8. LORATADINE. [Concomitant]
     Active Substance: LORATADINE
     Indication: ASTHMA
     Dosage: 1 DF, QD
     Route: 048
     Dates: start: 2016

REACTIONS (23)
  - Eye swelling [Recovering/Resolving]
  - Eye pain [Unknown]
  - Crying [Unknown]
  - Eyelid oedema [Recovered/Resolved]
  - Pharyngeal erythema [Recovered/Resolved]
  - Abdominal pain lower [Recovered/Resolved]
  - Pyrexia [Unknown]
  - Musculoskeletal pain [Unknown]
  - Hypersensitivity [Unknown]
  - Eyelid oedema [Recovered/Resolved]
  - Joint swelling [Unknown]
  - Pruritus [Unknown]
  - Eye oedema [Recovering/Resolving]
  - Weight decreased [Not Recovered/Not Resolved]
  - Hypoaesthesia [Unknown]
  - Abdominal pain upper [Not Recovered/Not Resolved]
  - Throat irritation [Recovered/Resolved]
  - Gait inability [Unknown]
  - Asthma [Recovering/Resolving]
  - Eye pruritus [Recovering/Resolving]
  - Arthralgia [Recovering/Resolving]
  - Paraesthesia [Recovering/Resolving]
  - Abdominal pain [Not Recovered/Not Resolved]

NARRATIVE: CASE EVENT DATE: 20181109
